FAERS Safety Report 7351409-8 (Version None)
Quarter: 2011Q1

REPORT INFORMATION
  Report Type: 
  Country: None (occurrence: None)
  Receive Date: 20110314
  Receipt Date: 20110216
  Transmission Date: 20110831
  Serious: No
  Sender: FDA-Public Use
  Company Number: US-B.I. PHARMACEUTICALS,INC./RIDGEFIELD-2011-BP-06066BP

PATIENT
  Sex: Female

DRUGS (11)
  1. PRADAXA [Suspect]
     Indication: ATRIAL FIBRILLATION
     Dosage: 300 MG
     Route: 048
     Dates: start: 20110131
  2. TRAMADOL [Concomitant]
     Indication: BACK DISORDER
     Dosage: 50 MG
     Route: 048
  3. ZOLPIDEM [Concomitant]
     Indication: INSOMNIA
     Dosage: 10 MG
     Route: 048
  4. SODIUM BICARBONATE [Concomitant]
     Indication: BLOOD SODIUM DECREASED
     Dosage: 1300 MG
     Route: 048
  5. VERAPAMIL [Concomitant]
     Indication: HYPERTENSION
     Dosage: 360 MG
     Route: 048
  6. PROZAC [Concomitant]
     Indication: DEPRESSION
     Dosage: 40 MG
     Route: 048
  7. TEKTURNA [Concomitant]
     Indication: HYPERTENSION
     Dosage: 300 MG
     Route: 048
  8. ALPRAZOLAM [Concomitant]
     Indication: INSOMNIA
     Dosage: 0.5 MG
     Route: 048
  9. ZETIA [Concomitant]
     Indication: PROPHYLAXIS
     Dosage: 10 MG
     Route: 048
  10. LOVAZA [Concomitant]
     Indication: PROPHYLAXIS
     Dosage: 4 G
     Route: 048
  11. POTASSIUM CHLORIDE [Concomitant]
     Indication: HYPOKALAEMIC SYNDROME
     Dosage: 20 MEQ
     Route: 048

REACTIONS (8)
  - ABDOMINAL DISCOMFORT [None]
  - LARYNGITIS [None]
  - WHEEZING [None]
  - BRONCHITIS [None]
  - PRODUCTIVE COUGH [None]
  - THROAT IRRITATION [None]
  - COUGH [None]
  - OROPHARYNGEAL PAIN [None]
